FAERS Safety Report 24277246 (Version 1)
Quarter: 2024Q3

REPORT INFORMATION
  Report Type: Spontaneous
  Country: US (occurrence: US)
  Receive Date: 20240903
  Receipt Date: 20240903
  Transmission Date: 20241016
  Serious: Yes (Other)
  Sender: BAYER
  Company Number: US-BAYER-2024A123177

PATIENT
  Age: 88 Year
  Sex: Female

DRUGS (2)
  1. ADEMPAS [Suspect]
     Active Substance: RIOCIGUAT
     Indication: Product used for unknown indication
     Route: 048
  2. MACITENTAN [Concomitant]
     Active Substance: MACITENTAN
     Indication: Pulmonary arterial hypertension
     Dosage: 10 MG, QD
     Dates: start: 202407

REACTIONS (8)
  - Neuropathy peripheral [None]
  - Pain in extremity [None]
  - Muscular weakness [None]
  - Asthenia [None]
  - Dizziness [None]
  - Malaise [None]
  - Poor quality sleep [None]
  - Pollakiuria [None]
